FAERS Safety Report 5579145-9 (Version None)
Quarter: 2008Q1

REPORT INFORMATION
  Report Type: 
  Country: None (occurrence: None)
  Receive Date: 20080102
  Receipt Date: 20071221
  Transmission Date: 20080703
  Serious: Yes (Disabling)
  Sender: FDA-Public Use
  Company Number: DK-ROCHE-406808

PATIENT
  Age: 41 Year
  Sex: Female
  Weight: 63 kg

DRUGS (2)
  1. ROACCUTAN [Suspect]
     Indication: ACNE
     Dosage: STRENGTH OF CAPSULES CLARIFIED AS 10 AND 20 MG
     Route: 048
     Dates: start: 20020601, end: 20021013
  2. ACCUTIN [Suspect]
     Indication: ACNE
     Dosage: STRENGTH OF CAPSULES CLARIFIED AS 10 AND 20 MG DRUG REPORTED AS ACCUTIN.
     Route: 048
     Dates: start: 20020601, end: 20021013

REACTIONS (10)
  - ARTHRALGIA [None]
  - BILIARY COLIC [None]
  - DEPRESSION [None]
  - GASTRIC PH DECREASED [None]
  - GASTRIC ULCER [None]
  - GASTROINTESTINAL DISORDER [None]
  - HEADACHE [None]
  - HYPERSENSITIVITY [None]
  - MYALGIA [None]
  - OESOPHAGITIS [None]
